FAERS Safety Report 7311730-6 (Version None)
Quarter: 2011Q1

REPORT INFORMATION
  Report Type: 
  Country: None (occurrence: None)
  Receive Date: 20110224
  Receipt Date: 20110216
  Transmission Date: 20110831
  Serious: Yes (Death, Other)
  Sender: FDA-Public Use
  Company Number: NO-MERCK-1102NOR00002

PATIENT
  Age: 82 Year
  Sex: Female

DRUGS (2)
  1. ZOCOR [Suspect]
     Route: 048
  2. WARFARIN [Suspect]
     Route: 048

REACTIONS (3)
  - DRUG INTERACTION [None]
  - INTERNATIONAL NORMALISED RATIO INCREASED [None]
  - CEREBRAL HAEMORRHAGE [None]
